FAERS Safety Report 8031607-0 (Version None)
Quarter: 2012Q1

REPORT INFORMATION
  Report Type: 
  Country: None (occurrence: None)
  Receive Date: 20120109
  Receipt Date: 20111229
  Transmission Date: 20120608
  Serious: Yes (Other)
  Sender: FDA-Public Use
  Company Number: US-ASTRAZENECA-2012SE00115

PATIENT

DRUGS (6)
  1. TOPROL-XL [Suspect]
     Route: 048
  2. CRESTOR [Suspect]
     Route: 048
  3. CYMBALTA [Concomitant]
  4. KLONOPIN [Concomitant]
  5. PLAVIX [Concomitant]
  6. NEXIUM [Suspect]
     Route: 048

REACTIONS (1)
  - CORONARY ARTERY DISEASE [None]
